FAERS Safety Report 17161621 (Version 6)
Quarter: 2020Q1

REPORT INFORMATION
  Report Type: Spontaneous
  Country: US (occurrence: US)
  Receive Date: 20191217
  Receipt Date: 20200129
  Transmission Date: 20200409
  Serious: Yes (Other)
  Sender: FDA-Public Use
  Company Number: NVSC2019US065740

PATIENT
  Age: 80 Year
  Sex: Male

DRUGS (3)
  1. LATANOPROST. [Suspect]
     Active Substance: LATANOPROST
     Indication: GLAUCOMA
     Dosage: 0.005 OT
     Route: 065
  2. XALATAN [Concomitant]
     Active Substance: LATANOPROST
     Indication: PRODUCT USED FOR UNKNOWN INDICATION
     Route: 065
  3. LATANOPROST. [Suspect]
     Active Substance: LATANOPROST
     Dosage: 1 GTT, QH
     Route: 047
     Dates: start: 20151221, end: 20191209

REACTIONS (6)
  - Eye burns [Unknown]
  - Product quality issue [Unknown]
  - Vision blurred [Unknown]
  - Dry eye [Unknown]
  - Eye pain [Unknown]
  - Keratitis [Unknown]

NARRATIVE: CASE EVENT DATE: 20191209
